FAERS Safety Report 14628075 (Version 1)
Quarter: 2018Q1

REPORT INFORMATION
  Report Type: Spontaneous
  Country: US (occurrence: US)
  Receive Date: 20180312
  Receipt Date: 20180312
  Transmission Date: 20180509
  Serious: No
  Sender: FDA-Public Use
  Company Number: US-ALLERGAN-1709865US

PATIENT
  Age: 7 Decade
  Sex: Female

DRUGS (2)
  1. ESTRACE [Suspect]
     Active Substance: ESTRADIOL
     Indication: HAEMATURIA
     Dosage: UNK
     Route: 067
     Dates: start: 201702, end: 201702
  2. INSULIN                            /01223201/ [Concomitant]

REACTIONS (2)
  - Headache [Recovered/Resolved]
  - Off label use [Unknown]
